FAERS Safety Report 16088186 (Version 1)
Quarter: 2019Q1

REPORT INFORMATION
  Report Type: Other
  Country: DE (occurrence: DE)
  Receive Date: 20190319
  Receipt Date: 20190319
  Transmission Date: 20190418
  Serious: Yes (Congenital Anomaly, Other)
  Sender: FDA-Public Use
  Company Number: DE-LUPIN PHARMACEUTICALS INC.-2019-01536

PATIENT
  Age: 1 Day
  Sex: Female
  Weight: 3.42 kg

DRUGS (6)
  1. RISPERDAL [Suspect]
     Active Substance: RISPERIDONE
     Indication: SCHIZOAFFECTIVE DISORDER
     Dosage: 2 MILLIGRAM, QD
     Route: 064
  2. LEPONEX [Suspect]
     Active Substance: CLOZAPINE
     Indication: SCHIZOAFFECTIVE DISORDER
     Dosage: INITIAL 225MG/D, INCREASING DOSAGE TO 350MG/D
     Route: 064
     Dates: start: 20171105, end: 20180724
  3. SERTRALINE [Suspect]
     Active Substance: SERTRALINE HYDROCHLORIDE
     Indication: SCHIZOAFFECTIVE DISORDER
     Dosage: UNK
     Route: 064
     Dates: start: 20171105, end: 20180201
  4. HALOPERIDOL. [Concomitant]
     Active Substance: HALOPERIDOL
     Indication: SCHIZOAFFECTIVE DISORDER
     Dosage: 6 MILLIGRAM, QD
     Route: 064
     Dates: start: 20180514, end: 20180724
  5. FOLSAEURE [Concomitant]
     Active Substance: FOLIC ACID
     Indication: VITAMIN SUPPLEMENTATION
     Dosage: 5 MILLIGRAM, QD
     Route: 064
     Dates: start: 20180518, end: 20180518
  6. ARIPIPRAZOL [Concomitant]
     Active Substance: ARIPIPRAZOLE
     Indication: SCHIZOAFFECTIVE DISORDER
     Dosage: UNK
     Route: 064
     Dates: start: 20171109, end: 20171109

REACTIONS (3)
  - Foetal exposure during pregnancy [Unknown]
  - Exomphalos [Recovered/Resolved with Sequelae]
  - Ventricular septal defect [Not Recovered/Not Resolved]

NARRATIVE: CASE EVENT DATE: 20180724
